FAERS Safety Report 13144454 (Version 2)
Quarter: 2017Q1

REPORT INFORMATION
  Report Type: Spontaneous
  Country: IT (occurrence: IT)
  Receive Date: 20170124
  Receipt Date: 20170124
  Transmission Date: 20170428
  Serious: Yes (Death, Hospitalization, Other)
  Sender: FDA-Public Use
  Company Number: IT-CIPLA LTD.-2017IT01011

PATIENT

DRUGS (6)
  1. RAMIPRIL. [Suspect]
     Active Substance: RAMIPRIL
     Indication: HYPERTENSION
     Dosage: 5 MG, DAILY
     Route: 065
  2. CARBOPLATIN. [Suspect]
     Active Substance: CARBOPLATIN
     Indication: PROSTATE CANCER
     Dosage: UNK
     Route: 065
  3. EPIRUBICIN [Suspect]
     Active Substance: EPIRUBICIN
     Indication: PROSTATE CANCER
     Dosage: UNK
     Route: 065
  4. DUTASTERIDE. [Suspect]
     Active Substance: DUTASTERIDE
     Indication: BENIGN PROSTATIC HYPERPLASIA
     Dosage: 0.5 MG, DAILY
     Route: 065
  5. KETOCONAZOLE. [Suspect]
     Active Substance: KETOCONAZOLE
     Indication: CUSHING^S SYNDROME
     Dosage: 400 MG, BID, FOR 5 WEEKS
     Route: 065
  6. OCTREOTIDE. [Suspect]
     Active Substance: OCTREOTIDE
     Indication: CUSHING^S SYNDROME
     Dosage: 0.1 MG, EVERY 8 HOURS
     Route: 058

REACTIONS (6)
  - Shared psychotic disorder [Unknown]
  - Sepsis [Unknown]
  - Febrile neutropenia [Unknown]
  - Cushing^s syndrome [Unknown]
  - Prostate cancer [Unknown]
  - Intestinal perforation [Fatal]
